FAERS Safety Report 12576077 (Version 2)
Quarter: 2016Q3

REPORT INFORMATION
  Report Type: Report from Study
  Country: AU (occurrence: AU)
  Receive Date: 20160720
  Receipt Date: 20160902
  Transmission Date: 20161109
  Serious: Yes (Hospitalization, Other)
  Sender: FDA-Public Use
  Company Number: AU-ABBVIE-16K-008-1678352-00

PATIENT
  Age: 69 Year
  Sex: Male

DRUGS (2)
  1. DUODOPA [Suspect]
     Active Substance: CARBIDOPA\LEVODOPA
     Indication: PARKINSON^S DISEASE
     Dosage: 16 HOUR INFUSION
     Route: 050
     Dates: start: 20130902
  2. DUODOPA [Suspect]
     Active Substance: CARBIDOPA\LEVODOPA
     Dosage: MD:11ML; CR:3.7ML/HR; ED:0.8ML
     Route: 050

REACTIONS (12)
  - Femoral neck fracture [Unknown]
  - Fall [Unknown]
  - General physical health deterioration [Unknown]
  - Weight decreased [Unknown]
  - Lower respiratory tract infection [Unknown]
  - Confusional state [Not Recovered/Not Resolved]
  - Disorientation [Unknown]
  - Fall [Unknown]
  - Tooth fracture [Unknown]
  - Dyskinesia [Unknown]
  - Malaise [Unknown]
  - Hypotension [Not Recovered/Not Resolved]

NARRATIVE: CASE EVENT DATE: 20130902
